FAERS Safety Report 17770718 (Version 1)
Quarter: 2020Q2

REPORT INFORMATION
  Report Type: Spontaneous
  Country: US (occurrence: US)
  Receive Date: 20200512
  Receipt Date: 20200512
  Transmission Date: 20200714
  Serious: No
  Sender: FDA-Public Use
  Company Number: US-SA-2020SA005153

PATIENT
  Age: 39 Year
  Sex: Female

DRUGS (6)
  1. BENADRYL ALLERGY [Concomitant]
     Active Substance: DIPHENHYDRAMINE HYDROCHLORIDE
  2. DUPIXENT [Suspect]
     Active Substance: DUPILUMAB
     Indication: PRODUCT USED FOR UNKNOWN INDICATION
  3. DUPIXENT [Suspect]
     Active Substance: DUPILUMAB
     Indication: DERMATITIS ATOPIC
     Dosage: 300 MG, QOW
     Route: 058
     Dates: start: 20191212
  4. CLARITIN-D NOS [Concomitant]
     Active Substance: LORATADINE\PSEUDOEPHEDRINE SULFATE
  5. TRIAMCINOLONE ACETONIDE. [Concomitant]
     Active Substance: TRIAMCINOLONE ACETONIDE
     Dosage: UNK
  6. ZYRTEC [Concomitant]
     Active Substance: CETIRIZINE HYDROCHLORIDE
     Indication: HYPERSENSITIVITY
     Dosage: UNK

REACTIONS (11)
  - Skin exfoliation [Unknown]
  - Skin burning sensation [Unknown]
  - Condition aggravated [Unknown]
  - Eyelid margin crusting [Unknown]
  - Dry skin [Unknown]
  - Rash [Unknown]
  - Unevaluable event [Unknown]
  - Eye swelling [Unknown]
  - Dermatitis atopic [Unknown]
  - Eyelid irritation [Unknown]
  - Dermatitis [Unknown]

NARRATIVE: CASE EVENT DATE: 20191212
